FAERS Safety Report 24458047 (Version 1)
Quarter: 2024Q4

REPORT INFORMATION
  Report Type: Spontaneous
  Country: CN (occurrence: CN)
  Receive Date: 20241018
  Receipt Date: 20241018
  Transmission Date: 20250115
  Serious: No
  Sender: ROCHE
  Company Number: CN-BoehringerIngelheim-2023-BI-268802

PATIENT
  Age: 80 Year
  Sex: Male
  Weight: 70.0 kg

DRUGS (2)
  1. ALTEPLASE [Suspect]
     Active Substance: ALTEPLASE
     Indication: Cerebral infarction
     Dosage: 10% OF THE THROMBOLYTIC DOSE?TOTAL DOSE: 63MG
     Route: 042
     Dates: start: 20231015, end: 20231015
  2. ALTEPLASE [Suspect]
     Active Substance: ALTEPLASE
     Dosage: 90% OF THE DOSE?TOTAL DOSE: 63MG
     Route: 041
     Dates: start: 20231015, end: 20231015

REACTIONS (1)
  - Haemorrhage urinary tract [Recovered/Resolved]

NARRATIVE: CASE EVENT DATE: 20231015
